FAERS Safety Report 17190795 (Version 1)
Quarter: 2019Q4

REPORT INFORMATION
  Report Type: Spontaneous
  Country: MY (occurrence: MY)
  Receive Date: 20191223
  Receipt Date: 20191223
  Transmission Date: 20200122
  Serious: Yes (Other)
  Sender: FDA-Public Use
  Company Number: MY-PFIZER INC-2019544324

PATIENT
  Age: 16 Year
  Sex: Female

DRUGS (1)
  1. CELEBREX [Suspect]
     Active Substance: CELECOXIB
     Indication: PAIN
     Dosage: 200 MG, 2X/DAY (EVERY 12 HOURS)
     Route: 048

REACTIONS (4)
  - Myocardial necrosis marker increased [Recovering/Resolving]
  - Electrocardiogram ST segment depression [Unknown]
  - Blood lactate dehydrogenase increased [Recovering/Resolving]
  - Electrocardiogram T wave inversion [Unknown]
